FAERS Safety Report 7345025-1 (Version None)
Quarter: 2011Q1

REPORT INFORMATION
  Report Type: 
  Country: None (occurrence: None)
  Receive Date: 20110310
  Receipt Date: 20110304
  Transmission Date: 20110831
  Serious: Yes (Other)
  Sender: FDA-Public Use
  Company Number: JP-PFIZER INC-2010026408

PATIENT
  Age: 9 Year
  Sex: Female

DRUGS (3)
  1. SOMATROPIN [Suspect]
     Indication: GROWTH HORMONE DEFICIENCY
     Dosage: 0.7 MG, 1X/DAY, 6 TIMES/WEEK
     Dates: start: 20080325
  2. SOMATROPIN [Suspect]
     Dosage: 0.9 MG, 1X/DAY, 6 TIMES/WEEK
     Dates: start: 20100108
  3. SOMATROPIN [Suspect]
     Dosage: 0.8 MG, 1X/DAY, 6 TIMES/WEEK
     Dates: start: 20090804

REACTIONS (3)
  - AVULSION FRACTURE [None]
  - FOOT FRACTURE [None]
  - FRACTURED COCCYX [None]
